FAERS Safety Report 8991953 (Version 2)
Quarter: 2013Q1

REPORT INFORMATION
  Report Type: Spontaneous
  Country: US (occurrence: US)
  Receive Date: 20121231
  Receipt Date: 20130111
  Transmission Date: 20140127
  Serious: No
  Sender: FDA-Public Use
  Company Number: US-009507513-1212USA011167

PATIENT
  Sex: Female

DRUGS (7)
  1. VICTRELIS [Suspect]
     Indication: CHRONIC HEPATITIS C
     Dosage: 800 MG, TID
     Route: 048
     Dates: start: 201208
  2. PEGASYS [Suspect]
  3. RIBASPHERE [Suspect]
  4. SPIRIVA [Concomitant]
  5. CELEBREX [Concomitant]
  6. ADVAIR [Concomitant]
  7. ALBUTEROL [Concomitant]

REACTIONS (2)
  - Headache [Recovered/Resolved]
  - Fatigue [Recovered/Resolved]
